FAERS Safety Report 14555844 (Version 2)
Quarter: 2018Q1

REPORT INFORMATION
  Report Type: Spontaneous
  Country: KR (occurrence: KR)
  Receive Date: 20180221
  Receipt Date: 20180223
  Transmission Date: 20180509
  Serious: Yes (Death, Other)
  Sender: FDA-Public Use
  Company Number: KR-AMGEN-KORSP2018023666

PATIENT
  Age: 44 Year
  Sex: Male

DRUGS (1)
  1. BLINCYTO [Suspect]
     Active Substance: BLINATUMOMAB
     Indication: PRODUCT USED FOR UNKNOWN INDICATION
     Dosage: UNK
     Route: 065
     Dates: start: 20171229, end: 2018

REACTIONS (4)
  - Drug ineffective [Unknown]
  - Neutropenia [Unknown]
  - General physical health deterioration [Unknown]
  - Pneumonia [Fatal]

NARRATIVE: CASE EVENT DATE: 2018
